FAERS Safety Report 21124476 (Version 1)
Quarter: 2022Q3

REPORT INFORMATION
  Report Type: Spontaneous
  Country: US (occurrence: None)
  Receive Date: 20220722
  Receipt Date: 20220722
  Transmission Date: 20221026
  Serious: No
  Sender: FDA-Public Use
  Company Number: None

PATIENT
  Age: 59 Year
  Sex: Female
  Weight: 93.44 kg

DRUGS (8)
  1. IBRANCE [Suspect]
     Active Substance: PALBOCICLIB
     Indication: Breast cancer female
     Dosage: OTHER FREQUENCY : 21 D ON 7D OFF;?
     Route: 048
     Dates: start: 202201
  2. ALBUTEROL [Concomitant]
  3. CLARITIN [Concomitant]
     Active Substance: LORATADINE
  4. MAGOX [Concomitant]
  5. OXYCODONE [Concomitant]
  6. PHYTONADIONE [Concomitant]
  7. VITAMIN D2 [Concomitant]
  8. XGEVA [Concomitant]

REACTIONS (3)
  - Oedema [None]
  - Therapy interrupted [None]
  - White blood cell count decreased [None]
